FAERS Safety Report 7504257-X (Version None)
Quarter: 2011Q2

REPORT INFORMATION
  Report Type: 
  Country: None (occurrence: None)
  Receive Date: 20110401
  Receipt Date: 20110117
  Transmission Date: 20111010
  Serious: No
  Sender: FDA-Public Use
  Company Number: US-004551

PATIENT
  Age: 63 Year
  Sex: Male
  Weight: 71.6683 kg

DRUGS (8)
  1. SIMVASTATIN [Concomitant]
  2. COQ10 [Concomitant]
  3. FIRMAGON [Suspect]
     Indication: PROSTATE CANCER
     Dosage: 240 MG TOTAL SUBCUTANEOUS, SUBCUTANEOUS
     Route: 058
     Dates: start: 20101025
  4. FIRMAGON [Suspect]
     Indication: PROSTATE CANCER
     Dosage: 240 MG TOTAL SUBCUTANEOUS, SUBCUTANEOUS
     Route: 058
     Dates: start: 20100927, end: 20100927
  5. ZOMETA [Concomitant]
  6. FISH OIL [Concomitant]
  7. PLAVIX [Concomitant]
  8. MULTI-VITAMIN [Concomitant]

REACTIONS (1)
  - INJECTION SITE NODULE [None]
